FAERS Safety Report 5755893-2 (Version None)
Quarter: 2008Q2

REPORT INFORMATION
  Report Type: 
  Country: None (occurrence: None)
  Receive Date: 20080528
  Receipt Date: 20080508
  Transmission Date: 20081010
  Serious: Yes (Death)
  Sender: FDA-Public Use
  Company Number: 2008AL004122

PATIENT
  Age: 75 Year
  Sex: Female
  Weight: 99.7913 kg

DRUGS (6)
  1. DIGOXIN [Suspect]
     Indication: THROMBOSIS
     Dosage: 0.125 MG ORAL
     Route: 048
     Dates: start: 20070101
  2. CARDIZEM [Concomitant]
  3. ATENOLOL [Concomitant]
  4. CARTIA XT [Concomitant]
  5. AMIODARONE HCL [Concomitant]
  6. WARFARIN SODIUM [Concomitant]

REACTIONS (3)
  - CARDIOACTIVE DRUG LEVEL INCREASED [None]
  - OEDEMA PERIPHERAL [None]
  - RENAL FAILURE [None]
